FAERS Safety Report 22660820 (Version 1)
Quarter: 2023Q2

REPORT INFORMATION
  Report Type: Spontaneous
  Country: AU (occurrence: AU)
  Receive Date: 20230630
  Receipt Date: 20230630
  Transmission Date: 20230722
  Serious: Yes (Other)
  Sender: FDA-Public Use
  Company Number: AU-SUN PHARMACEUTICAL INDUSTRIES LTD-2023RR-396543

PATIENT
  Age: 30 Year

DRUGS (4)
  1. PREGABALIN [Suspect]
     Active Substance: PREGABALIN
     Indication: Skin disorder
     Dosage: UNK
     Route: 065
  2. FEBUXOSTAT [Suspect]
     Active Substance: FEBUXOSTAT
     Indication: Skin disorder
     Dosage: UNK
     Route: 065
  3. LORNOXICAM [Suspect]
     Active Substance: LORNOXICAM
     Indication: Skin disorder
     Dosage: UNK
     Route: 065
  4. NAPROXEN [Suspect]
     Active Substance: NAPROXEN
     Indication: Skin disorder
     Dosage: UNK
     Route: 065

REACTIONS (1)
  - Toxic epidermal necrolysis [Unknown]
